FAERS Safety Report 9971877 (Version 1)
Quarter: 2014Q1

REPORT INFORMATION
  Report Type: Spontaneous
  Country: US (occurrence: US)
  Receive Date: 20140306
  Receipt Date: 20140306
  Transmission Date: 20141002
  Serious: No
  Sender: FDA-Public Use
  Company Number: US-ABBVIE-13P-163-1151145-00

PATIENT
  Sex: Female

DRUGS (2)
  1. HUMIRA [Suspect]
     Indication: MATERNAL EXPOSURE TIMING UNSPECIFIED
     Route: 064
  2. HUMIRA [Suspect]
     Route: 063

REACTIONS (11)
  - Foetal exposure during pregnancy [Unknown]
  - Bronchitis [Recovered/Resolved]
  - Antinuclear antibody positive [Recovered/Resolved]
  - Infectious mononucleosis [Recovered/Resolved]
  - Pyrexia [Recovered/Resolved]
  - Molluscum contagiosum [Not Recovered/Not Resolved]
  - Eczema [Recovered/Resolved]
  - Exposure during breast feeding [Unknown]
  - Normal newborn [Unknown]
  - Gastroenteritis viral [Recovered/Resolved]
  - Diarrhoea [Recovered/Resolved]
